FAERS Safety Report 24183746 (Version 1)
Quarter: 2024Q3

REPORT INFORMATION
  Report Type: Report from Study
  Country: KR (occurrence: KR)
  Receive Date: 20240807
  Receipt Date: 20240807
  Transmission Date: 20241017
  Serious: Yes (Death, Hospitalization)
  Sender: KARYOPHARM THERAPEUTICS
  Company Number: KR-ANTENGENE KOREA-20240702653

PATIENT
  Age: 65 Year
  Sex: Male
  Weight: 65.5 kg

DRUGS (18)
  1. SELINEXOR [Suspect]
     Active Substance: SELINEXOR
     Indication: Plasma cell myeloma
     Dosage: 80 MG, BIW
     Route: 048
     Dates: start: 20240701, end: 20240723
  2. ALMAGEL-F [Concomitant]
     Indication: Prophylaxis
     Dosage: UNK, TID
     Route: 048
     Dates: start: 20240701
  3. ONSERAN [Concomitant]
     Indication: Prophylaxis
     Dosage: 8 MG, QD
     Route: 048
     Dates: start: 20240701
  4. MACPERAN [METOCLOPRAMIDE] [Concomitant]
     Indication: Prophylaxis
     Dosage: UNK, TID
     Route: 048
     Dates: start: 20240701
  5. NALOXONE HYDROCHLORIDE\OXYCODONE HYDROCHLORIDE [Concomitant]
     Active Substance: NALOXONE HYDROCHLORIDE\OXYCODONE HYDROCHLORIDE
     Indication: Plasma cell myeloma
     Dosage: UNK, BID
     Route: 048
     Dates: start: 20240702
  6. OXYCODONE HYDROCHLORIDE [Concomitant]
     Active Substance: OXYCODONE HYDROCHLORIDE
     Indication: Plasma cell myeloma
     Dosage: 5 MG, TID
     Route: 048
     Dates: start: 20240701
  7. NEXIUM I.V. [Concomitant]
     Active Substance: ESOMEPRAZOLE SODIUM
     Indication: Prophylaxis
     Dosage: 20 MG, QD
     Route: 048
     Dates: start: 20240701
  8. ZOYLEX [ACICLOVIR] [Concomitant]
     Indication: Prophylaxis
     Dosage: 200 MG, QD
     Route: 048
     Dates: start: 20240701
  9. SULFAMETHOXAZOLE\TRIMETHOPRIM [Concomitant]
     Active Substance: SULFAMETHOXAZOLE\TRIMETHOPRIM
     Indication: Prophylaxis
     Dosage: UNK, QD
     Route: 048
     Dates: start: 20240701
  10. DEXAMETHASONE [Concomitant]
     Active Substance: DEXAMETHASONE
     Indication: Plasma cell myeloma
     Dosage: 20 MG
     Route: 048
     Dates: start: 20240701
  11. NORVASC [Concomitant]
     Active Substance: AMLODIPINE BESYLATE
     Dosage: 5 MG, QD
     Route: 048
     Dates: start: 20240715, end: 20240720
  12. FEBUXOSTAT [Concomitant]
     Active Substance: FEBUXOSTAT
     Dosage: 20 MG, QD
     Route: 048
     Dates: start: 20240715, end: 20240721
  13. VASTINAN MR [Concomitant]
     Dosage: 35 MG, BID
     Route: 048
     Dates: start: 20240715, end: 20240720
  14. MIRABEGRON [Concomitant]
     Active Substance: MIRABEGRON
     Dosage: 50 MG, QD
     Route: 048
     Dates: start: 20240715, end: 20240719
  15. SILODOSIN [Concomitant]
     Active Substance: SILODOSIN
     Dosage: 8 MG, QD
     Route: 048
     Dates: start: 20240715, end: 20240719
  16. LIVALO [Concomitant]
     Active Substance: PITAVASTATIN CALCIUM
     Dosage: 2 MG, QD
     Route: 048
     Dates: start: 20240715, end: 20240719
  17. EZET [Concomitant]
     Dosage: 10 MG, QD
     Route: 048
     Dates: start: 20240715, end: 20240719
  18. CALCIUM CARBONATE\CHOLECALCIFEROL [Concomitant]
     Active Substance: CALCIUM CARBONATE\CHOLECALCIFEROL
     Indication: Plasma cell myeloma
     Dosage: UNK
     Route: 048
     Dates: start: 20240715, end: 20240719

REACTIONS (9)
  - Cerebral haemorrhage [Fatal]
  - Pneumonia aspiration [Recovering/Resolving]
  - Nausea [Recovering/Resolving]
  - Blood glucose increased [Recovered/Resolved]
  - Hyperkalaemia [Recovered/Resolved]
  - Thrombocytopenia [Not Recovered/Not Resolved]
  - Anaemia [Not Recovered/Not Resolved]
  - Blood creatinine increased [Recovering/Resolving]
  - Neutropenia [Recovering/Resolving]

NARRATIVE: CASE EVENT DATE: 20240704
